FAERS Safety Report 20167712 (Version 1)
Quarter: 2021Q4

REPORT INFORMATION
  Report Type: Spontaneous
  Country: CN (occurrence: CN)
  Receive Date: 20211210
  Receipt Date: 20211210
  Transmission Date: 20220303
  Serious: Yes (Life-Threatening, Other)
  Sender: FDA-Public Use
  Company Number: CN-009507513-2112CHN000666

PATIENT
  Sex: Female
  Weight: 37 kg

DRUGS (2)
  1. CILASTATIN SODIUM\IMIPENEM [Suspect]
     Active Substance: CILASTATIN SODIUM\IMIPENEM
     Indication: Peritonitis
     Dosage: 1 GRAM, TWICE A DAY (BID)
     Route: 033
     Dates: start: 20211123, end: 20211126
  2. LOW CALCIUM PERITONEAL DIALYSIS (LACTATE-G1.5%) [Concomitant]
     Indication: Peritoneal dialysis
     Dosage: 2000 ML, BID
     Route: 033
     Dates: start: 20211123, end: 20211126

REACTIONS (3)
  - Seizure [Recovered/Resolved]
  - Product use issue [Unknown]
  - Incorrect route of product administration [Unknown]

NARRATIVE: CASE EVENT DATE: 20211123
